FAERS Safety Report 9527563 (Version 1)
Quarter: 2013Q1

REPORT INFORMATION
  Report Type: Spontaneous
  Country: US (occurrence: None)
  Receive Date: 20130314
  Receipt Date: 20130314
  Transmission Date: 20140127
  Serious: No
  Sender: FDA-Public Use
  Company Number: 1212USA008500

PATIENT
  Sex: Male
  Weight: 90.72 kg

DRUGS (5)
  1. VICTRELIS [Suspect]
  2. RIBAVIRIN [Suspect]
  3. PEGASYS [Suspect]
  4. NADOLOL (NADOLOL) TABLET [Concomitant]
  5. TRAMADOL HYDROCHLORIDE (TRAMADOL HYDROCHLORIDE) TABLET [Concomitant]

REACTIONS (5)
  - Laboratory test abnormal [None]
  - Injection site rash [None]
  - Rash pruritic [None]
  - Irritability [None]
  - Rash [None]
